FAERS Safety Report 13988339 (Version 4)
Quarter: 2020Q1

REPORT INFORMATION
  Report Type: Report from Study
  Country: GB (occurrence: GB)
  Receive Date: 20170919
  Receipt Date: 20200217
  Transmission Date: 20200409
  Serious: Yes (Other)
  Sender: FDA-Public Use
  Company Number: GB-BRISTOL-MYERS SQUIBB COMPANY-BMS-2017-004670

PATIENT
  Sex: Female

DRUGS (1)
  1. ABATACEPT [Suspect]
     Active Substance: ABATACEPT
     Indication: RHEUMATOID ARTHRITIS
     Dosage: 125 MG, QWK
     Route: 058
     Dates: start: 20161215

REACTIONS (6)
  - Meningitis [Unknown]
  - Pleurisy [Unknown]
  - Malaise [Recovering/Resolving]
  - Viral infection [Unknown]
  - Lower respiratory tract infection [Unknown]
  - Condition aggravated [Unknown]
